FAERS Safety Report 6248729-7 (Version None)
Quarter: 2009Q2

REPORT INFORMATION
  Report Type: 
  Country: None (occurrence: None)
  Receive Date: 20090625
  Receipt Date: 20090625
  Transmission Date: 20091009
  Serious: Yes (Hospitalization)
  Sender: FDA-Public Use
  Company Number: None

PATIENT
  Sex: Male
  Weight: 72 kg

DRUGS (5)
  1. CYCLOPHOSPHAMIDE [Suspect]
     Dosage: 1567 MG
  2. CYTARABINE [Suspect]
     Dosage: 50 MG
  3. DOXIL [Suspect]
     Dosage: 84 MG
  4. PREDNISONE TAB [Suspect]
     Dosage: 200 MG
  5. VINCRISTINE SULFATE [Suspect]
     Dosage: 2 MG

REACTIONS (2)
  - ANAEMIA [None]
  - PLATELET COUNT ABNORMAL [None]
